FAERS Safety Report 10260920 (Version 1)
Quarter: 2014Q2

REPORT INFORMATION
  Report Type: Spontaneous
  Country: US (occurrence: US)
  Receive Date: 20140626
  Receipt Date: 20140626
  Transmission Date: 20141212
  Serious: Yes (Other)
  Sender: FDA-Public Use
  Company Number: US-JNJFOC-20140610896

PATIENT
  Sex: Female
  Weight: 117.03 kg

DRUGS (3)
  1. DURAGESIC [Suspect]
     Indication: PAIN
     Dosage: IN EVERY FORTY EIGHT HOURS
     Route: 062
     Dates: end: 2014
  2. DURAGESIC [Suspect]
     Indication: PAIN
     Dosage: IN EVERY SEVENTY TWO HOURS
     Route: 062
     Dates: start: 2014
  3. LYRICA [Suspect]
     Indication: PAIN IN EXTREMITY
     Route: 065

REACTIONS (7)
  - Peroneal muscular atrophy [Unknown]
  - Breakthrough pain [Unknown]
  - Incorrect dose administered [Unknown]
  - Application site erythema [Unknown]
  - Application site pustules [Unknown]
  - Product quality issue [Unknown]
  - Inappropriate schedule of drug administration [Recovered/Resolved]
